FAERS Safety Report 5629080-2 (Version None)
Quarter: 2008Q1

REPORT INFORMATION
  Report Type: 
  Country: None (occurrence: None)
  Receive Date: 20080216
  Receipt Date: 20071218
  Transmission Date: 20080703
  Serious: Yes (Other)
  Sender: FDA-Public Use
  Company Number: US-PURDUE-USA_2007_0031638

PATIENT
  Sex: Male

DRUGS (1)
  1. OXYCONTIN [Suspect]
     Indication: ARTHRITIS
     Dates: start: 20000101, end: 20020101

REACTIONS (4)
  - DRUG DEPENDENCE [None]
  - FEELING ABNORMAL [None]
  - LIVER DISORDER [None]
  - LIVER OPERATION [None]
